FAERS Safety Report 5247255-1 (Version None)
Quarter: 2007Q1

REPORT INFORMATION
  Report Type: 
  Country: None (occurrence: None)
  Receive Date: 20070227
  Receipt Date: 20070213
  Transmission Date: 20070707
  Serious: Yes (Hospitalization, Other)
  Sender: FDA-Public Use
  Company Number: PHHO2007MX03016

PATIENT
  Age: 51 Year
  Sex: Female

DRUGS (5)
  1. ZELMAC / HTF 919A [Suspect]
     Indication: GASTROINTESTINAL INFLAMMATION
     Dosage: 6 MG, BID
     Route: 048
     Dates: start: 20070101, end: 20070101
  2. ZELMAC / HTF 919A [Suspect]
     Dosage: NO TREATMENT
  3. ZELMAC / HTF 919A [Suspect]
     Dosage: 6 MG, BID
     Route: 048
     Dates: end: 20070211
  4. RIOPAN [Suspect]
  5. PANTOZOL [Suspect]

REACTIONS (9)
  - ANXIETY [None]
  - ASTHENIA [None]
  - DYSPEPSIA [None]
  - HAEMORRHOID OPERATION [None]
  - HAEMORRHOIDS [None]
  - HYPOTENSION [None]
  - INSOMNIA [None]
  - PAIN [None]
  - TACHYCARDIA [None]
